FAERS Safety Report 14169866 (Version 1)
Quarter: 2017Q4

REPORT INFORMATION
  Report Type: Spontaneous
  Country: US (occurrence: None)
  Receive Date: 20171107
  Receipt Date: 20171107
  Transmission Date: 20180321
  Serious: No
  Sender: FDA-Public Use
  Company Number: None

PATIENT
  Age: 45 Year
  Sex: Male

DRUGS (1)
  1. ALBUTEROL. [Suspect]
     Active Substance: ALBUTEROL
     Indication: CHRONIC OBSTRUCTIVE PULMONARY DISEASE
     Dates: start: 20171001, end: 20171023

REACTIONS (4)
  - Palpitations [None]
  - Feeling jittery [None]
  - Product substitution issue [None]
  - Tachypnoea [None]

NARRATIVE: CASE EVENT DATE: 20171023
